FAERS Safety Report 8777555 (Version 1)
Quarter: 2012Q4

REPORT INFORMATION
  Report Type: 
  Country: GR (occurrence: GR)
  Receive Date: 20120911
  Receipt Date: 20120911
  Transmission Date: 20130627
  Serious: Yes (Other)
  Sender: FDA-Public Use
  Company Number: PHHY2012GR078397

PATIENT
  Age: 61 Year
  Sex: Female

DRUGS (1)
  1. EXTAVIA [Suspect]
     Dates: start: 20110914

REACTIONS (2)
  - Lower limb fracture [Unknown]
  - Dizziness [Unknown]
